FAERS Safety Report 6206345-7 (Version None)
Quarter: 2009Q2

REPORT INFORMATION
  Report Type: 
  Country: None (occurrence: None)
  Receive Date: 20090528
  Receipt Date: 20090525
  Transmission Date: 20091009
  Serious: Yes (Death, Hospitalization, Other)
  Sender: FDA-Public Use
  Company Number: PHHY2009BR20237

PATIENT
  Age: 74 Year
  Sex: Female

DRUGS (6)
  1. FORASEQ [Suspect]
     Indication: BRONCHITIS
     Dosage: UNK
  2. JUMEXAL [Concomitant]
     Indication: PARKINSON'S DISEASE
     Route: 048
  3. PROLOPA [Concomitant]
     Indication: PARKINSON'S DISEASE
     Dosage: UNK
     Route: 048
  4. MAREVAN [Concomitant]
     Indication: COAGULOPATHY
     Route: 048
  5. SUSTRATE [Concomitant]
     Indication: ANGINA PECTORIS
     Route: 048
  6. AMIODARONE [Concomitant]
     Indication: ARRHYTHMIA
     Route: 048

REACTIONS (5)
  - BLOOD PRESSURE INCREASED [None]
  - BRONCHOSPASM [None]
  - DYSPNOEA [None]
  - INCREASED UPPER AIRWAY SECRETION [None]
  - INFARCTION [None]
